FAERS Safety Report 19844409 (Version 3)
Quarter: 2024Q4

REPORT INFORMATION
  Report Type: Report from Study
  Country: TR (occurrence: TR)
  Receive Date: 20210917
  Receipt Date: 20241127
  Transmission Date: 20250115
  Serious: Yes (Hospitalization)
  Sender: ROCHE
  Company Number: TR-ROCHE-2723050

PATIENT
  Age: 46 Year
  Sex: Female
  Weight: 94.0 kg

DRUGS (24)
  1. OCRELIZUMAB [Suspect]
     Active Substance: OCRELIZUMAB
     Indication: Relapsing-remitting multiple sclerosis
     Dosage: MOST RECENT DATE OF OCRELIZUMAB PRIOR TO SAE ONSET 25/JUN/2020 (DOSE: 600MG/500 ML (INFUSION STARTED
     Route: 042
     Dates: start: 20200625, end: 20200625
  2. OCRELIZUMAB [Suspect]
     Active Substance: OCRELIZUMAB
     Dosage: DOSE: 300 MG/250 ML (INFUSION STARTED AT 10.55 AND ENDED AT 13.55)
     Route: 042
     Dates: start: 20191219, end: 20191219
  3. OCRELIZUMAB [Suspect]
     Active Substance: OCRELIZUMAB
     Dosage: DOSE: 300 MG/250 ML (INFUSION STARTED AT 11.50 AND ENDED AT 14.50)
     Route: 042
     Dates: start: 20191205, end: 20191205
  4. OCRELIZUMAB [Suspect]
     Active Substance: OCRELIZUMAB
     Dosage: MOST RECENT DATE OF OCRELIZUMAB PRIOR TO SAE ONSET 25/JUN/2020 (DOSE: 600MG/500 ML (INFUSION STARTED
     Route: 042
     Dates: start: 20221024, end: 20221024
  5. OCRELIZUMAB [Suspect]
     Active Substance: OCRELIZUMAB
     Dosage: MOST RECENT DATE OF OCRELIZUMAB PRIOR TO SAE ONSET 25/JUN/2020 (DOSE: 600MG/500 ML (INFUSION STARTED
     Route: 042
     Dates: start: 20200625, end: 20200625
  6. OCRELIZUMAB [Suspect]
     Active Substance: OCRELIZUMAB
     Dosage: MOST RECENT DATE OF OCRELIZUMAB PRIOR TO SAE ONSET 25/JUN/2020 (DOSE: 600MG/500 ML (INFUSION STARTED
     Route: 042
     Dates: start: 20210727, end: 20210727
  7. OCRELIZUMAB [Suspect]
     Active Substance: OCRELIZUMAB
     Dosage: MOST RECENT DATE OF OCRELIZUMAB PRIOR TO SAE ONSET 25/JUN/2020 (DOSE: 600MG/500 ML (INFUSION STARTED
     Route: 042
     Dates: start: 20240607, end: 20240607
  8. OCRELIZUMAB [Suspect]
     Active Substance: OCRELIZUMAB
     Dosage: MOST RECENT DATE OF OCRELIZUMAB PRIOR TO SAE ONSET 25/JUN/2020 (DOSE: 600MG/500 ML (INFUSION STARTED
     Route: 042
     Dates: start: 20220214, end: 20220214
  9. OCRELIZUMAB [Suspect]
     Active Substance: OCRELIZUMAB
     Dosage: MOST RECENT DATE OF OCRELIZUMAB PRIOR TO SAE ONSET 25/JUN/2020 (DOSE: 600MG/500 ML (INFUSION STARTED
     Route: 042
     Dates: start: 20210120, end: 20210120
  10. OCRELIZUMAB [Suspect]
     Active Substance: OCRELIZUMAB
     Dosage: MOST RECENT DATE OF OCRELIZUMAB PRIOR TO SAE ONSET 25/JUN/2020 (DOSE: 600MG/500 ML (INFUSION STARTED
     Route: 042
     Dates: start: 20210120, end: 20210120
  11. OCRELIZUMAB [Suspect]
     Active Substance: OCRELIZUMAB
     Dosage: MOST RECENT DATE OF OCRELIZUMAB PRIOR TO SAE ONSET 25/JUN/2020 (DOSE: 600MG/500 ML (INFUSION STARTED
     Route: 042
     Dates: start: 20231117, end: 20231117
  12. OCRELIZUMAB [Suspect]
     Active Substance: OCRELIZUMAB
     Dosage: MOST RECENT DATE OF OCRELIZUMAB PRIOR TO SAE ONSET 25/JUN/2020 (DOSE: 600MG/500 ML (INFUSION STARTED
     Route: 042
     Dates: start: 20230510, end: 20230510
  13. METHYLPREDNISOLONE [Concomitant]
     Active Substance: METHYLPREDNISOLONE
     Indication: Premedication
     Dosage: FREQUENCY TEXT:ONCE BEFORE INFUSION
     Route: 042
     Dates: start: 20191205, end: 20191205
  14. METHYLPREDNISOLONE [Concomitant]
     Active Substance: METHYLPREDNISOLONE
     Dosage: FREQUENCY TEXT:ONCE BEFORE INFUSION
     Route: 042
     Dates: start: 20191219, end: 20191219
  15. METHYLPREDNISOLONE [Concomitant]
     Active Substance: METHYLPREDNISOLONE
     Dosage: FREQUENCY TEXT:ONCE BEFORE INFUSION
     Route: 042
     Dates: start: 20200625, end: 20200625
  16. DRAMAMINE [Concomitant]
     Active Substance: DIMENHYDRINATE
     Indication: Premedication
     Dosage: FREQUENCY TEXT:ONCE BEFORE INFUSION
     Route: 048
     Dates: start: 20191205, end: 20191205
  17. DRAMAMINE [Concomitant]
     Active Substance: DIMENHYDRINATE
     Dosage: FREQUENCY TEXT:ONCE BEFORE INFUSION
     Route: 048
     Dates: start: 20191219, end: 20191219
  18. DRAMAMINE [Concomitant]
     Active Substance: DIMENHYDRINATE
     Dosage: FREQUENCY TEXT:ONCE BEFORE INFUSION
     Route: 048
     Dates: start: 20200625, end: 20200625
  19. ACETAMINOPHEN [Concomitant]
     Active Substance: ACETAMINOPHEN
     Indication: Premedication
     Dosage: FREQUENCY TEXT:ONCE BEFORE INFUSION
     Route: 048
     Dates: start: 20191205, end: 20191205
  20. ACETAMINOPHEN [Concomitant]
     Active Substance: ACETAMINOPHEN
     Dosage: FREQUENCY TEXT:ONCE BEFORE INFUSION
     Route: 048
     Dates: start: 20191219, end: 20191219
  21. ACETAMINOPHEN [Concomitant]
     Active Substance: ACETAMINOPHEN
     Dosage: FREQUENCY TEXT:ONCE BEFORE INFUSION
     Route: 048
     Dates: start: 20200625, end: 20200625
  22. PHENIRAMINE [Concomitant]
     Active Substance: PHENIRAMINE
     Indication: Premedication
     Dosage: FREQUENCY TEXT:ONCE BEFORE INFUSION
     Route: 042
     Dates: start: 20191205, end: 20191205
  23. PHENIRAMINE [Concomitant]
     Active Substance: PHENIRAMINE
     Dosage: FREQUENCY TEXT:ONCE BEFORE INFUSION
     Route: 042
     Dates: start: 20191219, end: 20191219
  24. PHENIRAMINE [Concomitant]
     Active Substance: PHENIRAMINE
     Dosage: FREQUENCY TEXT:ONCE BEFORE INFUSION
     Route: 042
     Dates: start: 20200625, end: 20200625

REACTIONS (1)
  - Appendicitis [Recovered/Resolved]

NARRATIVE: CASE EVENT DATE: 20201111
